FAERS Safety Report 21086965 (Version 1)
Quarter: 2022Q3

REPORT INFORMATION
  Report Type: Spontaneous
  Country: US (occurrence: None)
  Receive Date: 20220714
  Receipt Date: 20220714
  Transmission Date: 20221027
  Serious: No
  Sender: FDA-Public Use
  Company Number: None

PATIENT
  Age: 69 Year
  Sex: Male

DRUGS (1)
  1. PLEGRIDY [Suspect]
     Active Substance: PEGINTERFERON BETA-1A
     Indication: Multiple sclerosis
     Dosage: OTHER FREQUENCY : EVERY14DAYS;?
     Route: 058
     Dates: start: 20210929

REACTIONS (5)
  - Device defective [None]
  - Device mechanical issue [None]
  - Device malfunction [None]
  - Drug dose omission by device [None]
  - Skin irritation [None]

NARRATIVE: CASE EVENT DATE: 20220713
